FAERS Safety Report 9349630 (Version 1)
Quarter: 2013Q2

REPORT INFORMATION
  Report Type: Spontaneous
  Country: ES (occurrence: ES)
  Receive Date: 20130614
  Receipt Date: 20130614
  Transmission Date: 20140414
  Serious: Yes (Life-Threatening)
  Sender: FDA-Public Use
  Company Number: ES-ELI_LILLY_AND_COMPANY-ES201306003300

PATIENT
  Sex: Male

DRUGS (1)
  1. EFIENT [Suspect]

REACTIONS (1)
  - Respiratory tract congestion [Unknown]
